FAERS Safety Report 11719260 (Version 4)
Quarter: 2018Q2

REPORT INFORMATION
  Report Type: Spontaneous
  Country: FR (occurrence: FR)
  Receive Date: 20151110
  Receipt Date: 20180425
  Transmission Date: 20180711
  Serious: Yes (Hospitalization, Other)
  Sender: FDA-Public Use
  Company Number: FR-PFIZER INC-2015375171

PATIENT
  Age: 14 Year
  Sex: Female
  Weight: 59 kg

DRUGS (3)
  1. TERCIAN [Suspect]
     Active Substance: CYAMEMAZINE
     Dosage: 1 DF, ONCE DAILY (QD) (1 DF = 5 DROPS)
     Route: 048
     Dates: start: 20150428
  2. ZOLOFT [Suspect]
     Active Substance: SERTRALINE HYDROCHLORIDE
     Dosage: UNK
     Route: 048
     Dates: start: 20150211, end: 20150218
  3. ABILIFY [Suspect]
     Active Substance: ARIPIPRAZOLE
     Dosage: 10 MG, ONCE DAILY (QD)
     Route: 048
     Dates: start: 20150119

REACTIONS (6)
  - Muscle rigidity [Recovered/Resolved]
  - Suicide attempt [Recovering/Resolving]
  - Mood altered [Recovering/Resolving]
  - Bipolar I disorder [Recovered/Resolved]
  - Hallucination [Recovered/Resolved]
  - Suicidal ideation [Recovered/Resolved]

NARRATIVE: CASE EVENT DATE: 20150218
